FAERS Safety Report 15075167 (Version 1)
Quarter: 2018Q3

REPORT INFORMATION
  Report Type: Spontaneous
  Country: US (occurrence: US)
  Receive Date: 20180627
  Receipt Date: 20180627
  Transmission Date: 20181010
  Serious: Yes (Other)
  Sender: FDA-Public Use
  Company Number: US-SAOL THERAPEUTICS-2017SAO01375

PATIENT
  Age: 51 Year
  Sex: Female

DRUGS (2)
  1. OTHER UNSPECIFIED INTRATHECAL MEDICATIONS [Suspect]
     Active Substance: UNSPECIFIED INGREDIENT
     Route: 037
  2. BACLOFEN. [Suspect]
     Active Substance: BACLOFEN
     Indication: MUSCLE SPASTICITY
     Route: 037

REACTIONS (7)
  - Therapy non-responder [Unknown]
  - Device failure [None]
  - Pruritus [Unknown]
  - Discomfort [None]
  - Pain [Unknown]
  - Drug withdrawal syndrome [Unknown]
  - Complication associated with device [Unknown]

NARRATIVE: CASE EVENT DATE: 201708
